FAERS Safety Report 4869139-0 (Version None)
Quarter: 2005Q4

REPORT INFORMATION
  Report Type: 
  Country: None (occurrence: None)
  Receive Date: 20051228
  Receipt Date: 20051228
  Transmission Date: 20060501
  Serious: No
  Sender: FDA-Public Use
  Company Number: None

PATIENT
  Age: 41 Year
  Sex: Female
  Weight: 61.2356 kg

DRUGS (3)
  1. MIRCETTE [Suspect]
     Indication: CONTRACEPTION
     Dosage: ONE PO A DAY
     Route: 048
  2. MIRCETTE [Suspect]
     Indication: MIGRAINE
     Dosage: ONE PO A DAY
     Route: 048
  3. IMITREX [Concomitant]

REACTIONS (1)
  - DEEP VEIN THROMBOSIS [None]
